FAERS Safety Report 13740980 (Version 1)
Quarter: 2017Q3

REPORT INFORMATION
  Report Type: Spontaneous
  Country: US (occurrence: US)
  Receive Date: 20170711
  Receipt Date: 20170711
  Transmission Date: 20171127
  Serious: Yes (Hospitalization)
  Sender: FDA-Public Use
  Company Number: US-BAYER-2017-078105

PATIENT
  Age: 66 Year
  Sex: Male

DRUGS (5)
  1. ACETYLSALICYLIC ACID (} 100 MG) [Suspect]
     Active Substance: ASPIRIN
     Indication: CATHETERISATION CARDIAC
     Dosage: 325 MG, UNK
     Route: 065
     Dates: start: 201605
  2. XARELTO [Suspect]
     Active Substance: RIVAROXABAN
     Indication: ATRIAL FIBRILLATION
     Dosage: 20 MG, UNK
     Route: 048
     Dates: start: 20150630, end: 20160502
  3. XARELTO [Suspect]
     Active Substance: RIVAROXABAN
     Indication: CEREBROVASCULAR ACCIDENT PROPHYLAXIS
  4. ACETYLSALICYLIC ACID (} 100 MG) [Suspect]
     Active Substance: ASPIRIN
     Indication: ARTHRALGIA
     Dosage: 325 MG, UNK
     Route: 065
     Dates: start: 201506
  5. PRASUGREL. [Suspect]
     Active Substance: PRASUGREL
     Indication: CATHETERISATION CARDIAC
     Dosage: UNK
     Route: 065
     Dates: end: 201605

REACTIONS (3)
  - Epistaxis [Unknown]
  - Gastrointestinal haemorrhage [Recovering/Resolving]
  - Blood urine present [Unknown]

NARRATIVE: CASE EVENT DATE: 20160502
